FAERS Safety Report 7618575-8 (Version None)
Quarter: 2011Q3

REPORT INFORMATION
  Report Type: 
  Country: None (occurrence: None)
  Receive Date: 20110718
  Receipt Date: 20110712
  Transmission Date: 20111222
  Serious: Yes (Hospitalization)
  Sender: FDA-Public Use
  Company Number: FR-PFIZER INC-2011156628

PATIENT
  Age: 66 Year
  Sex: Male

DRUGS (9)
  1. MORPHINE SULFATE [Concomitant]
     Dosage: 60 MG, 1X/DAY
     Route: 048
  2. LYRICA [Suspect]
     Indication: INFLUENZA
     Dosage: 150 MG, 1X/DAY
     Route: 048
     Dates: start: 20091101, end: 20091101
  3. OFLOXACIN [Suspect]
     Route: 048
  4. NEXIUM [Suspect]
     Dosage: 40 MG, 1X/DAY
     Route: 048
     Dates: end: 20091101
  5. ACETAMINOPHEN [Suspect]
     Indication: INFLUENZA
     Dosage: 1 G, 3X/DAY
     Route: 048
     Dates: start: 20091101, end: 20091101
  6. FORLAX [Concomitant]
     Dosage: 2 DF, 1X/DAY
     Route: 048
     Dates: end: 20091101
  7. PREVISCAN [Concomitant]
     Route: 048
  8. TAMIFLU [Suspect]
     Indication: INFLUENZA
     Dosage: UNK
     Route: 048
     Dates: start: 20091101, end: 20091101
  9. LEVOTHYROXINE SODIUM [Concomitant]
     Dosage: 100 UG, 1X/DAY
     Route: 048

REACTIONS (1)
  - RENAL TUBULAR DISORDER [None]
